FAERS Safety Report 8611792-X (Version None)
Quarter: 2012Q3

REPORT INFORMATION
  Report Type: 
  Country: None (occurrence: None)
  Receive Date: 20120822
  Receipt Date: 20120815
  Transmission Date: 20120928
  Serious: Yes (Death)
  Sender: FDA-Public Use
  Company Number: US-BAXTER-2012BAX014658

PATIENT
  Sex: Male

DRUGS (4)
  1. DIANEAL LOW CALCIUM W/ DEXTROSE 1.5% [Suspect]
     Indication: PERITONEAL DIALYSIS
     Route: 033
     Dates: end: 20120813
  2. DIANEAL [Suspect]
     Route: 033
     Dates: end: 20120813
  3. DIANEAL [Suspect]
     Indication: PERITONEAL DIALYSIS
     Route: 033
     Dates: end: 20120813
  4. DIANEAL [Suspect]
     Route: 033
     Dates: end: 20120813

REACTIONS (3)
  - CARDIAC FAILURE [None]
  - RESPIRATORY FAILURE [None]
  - CARDIAC DISORDER [None]
